FAERS Safety Report 6711708-7 (Version None)
Quarter: 2010Q2

REPORT INFORMATION
  Report Type: 
  Country: None (occurrence: None)
  Receive Date: 20100505
  Receipt Date: 20100429
  Transmission Date: 20101027
  Serious: Yes (Death, Hospitalization, Other)
  Sender: FDA-Public Use
  Company Number: GB-ROCHE-691012

PATIENT
  Age: 46 Year
  Sex: Male

DRUGS (10)
  1. NAPROXEN [Suspect]
     Indication: ANALGESIC THERAPY
     Route: 065
  2. POLYETHYLENE GLYCOL 3350 [Suspect]
     Indication: CONSTIPATION
     Dosage: I DAYS
     Route: 065
  3. CARBOPLATIN [Suspect]
     Indication: CHEMOTHERAPY
     Route: 065
  4. DEXAMETASONE [Suspect]
     Dosage: OTHER INDICATION: ROUTINE HEALTH MAINTENANCE, DOSE : 2 MG, 4 MG
     Route: 065
  5. WARFARIN SODIUM [Concomitant]
     Indication: PULMONARY EMBOLISM
     Dosage: OTHER INDICATION: DEEP VEIN THROMBOSIS
     Route: 065
  6. DIAMORPHINE [Concomitant]
     Indication: ANALGESIC THERAPY
     Dosage: DOSE 100 MG, DURATION 1 DAY
     Route: 058
  7. MIDAZOLAM HCL [Concomitant]
     Indication: ANALGESIC THERAPY
     Dosage: DOSE 10 MG, DURATION 1 DAY.
     Route: 058
  8. KETAMINE [Concomitant]
     Indication: ANALGESIC THERAPY
     Route: 065
  9. HYDROCORTISONE [Concomitant]
     Indication: DRUG USE FOR UNKNOWN INDICATION
     Route: 042
  10. MORPHINE [Concomitant]

REACTIONS (13)
  - ADRENAL INSUFFICIENCY [None]
  - CONSTIPATION [None]
  - DEEP VEIN THROMBOSIS [None]
  - GENERAL PHYSICAL HEALTH DETERIORATION [None]
  - HAEMORRHAGE [None]
  - HYPERKALAEMIA [None]
  - HYPONATRAEMIA [None]
  - HYPOTENSION [None]
  - INTERNATIONAL NORMALISED RATIO [None]
  - METASTASES TO ADRENALS [None]
  - PULMONARY EMBOLISM [None]
  - TACHYCARDIA [None]
  - TUMOUR HAEMORRHAGE [None]
